FAERS Safety Report 12573023 (Version 1)
Quarter: 2016Q3

REPORT INFORMATION
  Report Type: Spontaneous
  Country: None (occurrence: None)
  Receive Date: 20160719
  Receipt Date: 20160719
  Transmission Date: 20161109
  Serious: No
  Sender: FDA-Public Use
  Company Number: None

PATIENT
  Age: 52 Year
  Sex: Female
  Weight: 95.71 kg

DRUGS (1)
  1. CLOZAPINE, 25MG [Suspect]
     Active Substance: CLOZAPINE
     Route: 048
     Dates: start: 20160606, end: 20160607

REACTIONS (2)
  - Dizziness [None]
  - Fall [None]

NARRATIVE: CASE EVENT DATE: 20160607
